FAERS Safety Report 21333173 (Version 1)
Quarter: 2022Q3

REPORT INFORMATION
  Report Type: Spontaneous
  Country: IN (occurrence: IN)
  Receive Date: 20220914
  Receipt Date: 20220914
  Transmission Date: 20221027
  Serious: Yes (Other)
  Sender: FDA-Public Use
  Company Number: IN-PFIZER INC-PV202200062117

PATIENT
  Age: 73 Year
  Sex: Female

DRUGS (11)
  1. PALBOCICLIB [Suspect]
     Active Substance: PALBOCICLIB
     Indication: Invasive ductal breast carcinoma
     Dosage: 75 MG, DAILY
     Route: 048
     Dates: start: 20220722
  2. PANTOPRAZOLE [Concomitant]
     Active Substance: PANTOPRAZOLE
     Dosage: 1 DF, DAILY, 30 MINS BEFORE FOOD
     Route: 048
  3. ONDANSETRON HYDROCHLORIDE [Concomitant]
     Active Substance: ONDANSETRON HYDROCHLORIDE
     Dosage: 1 DF SOS, 30 MINS BEFORE FOOD
     Route: 048
  4. ULTRACET [Concomitant]
     Active Substance: ACETAMINOPHEN\TRAMADOL HYDROCHLORIDE
     Indication: Pain
     Dosage: 1 DF SOS
     Route: 048
  5. DOLO 650 [Concomitant]
     Indication: Pain
     Dosage: 1 DF SOS
     Route: 048
  6. DOLO 650 [Concomitant]
     Indication: Pyrexia
  7. DUPHALAC [Concomitant]
     Active Substance: LACTULOSE
     Indication: Constipation
     Dosage: 0-0-1 (30ML), SOS
     Route: 048
  8. BETADINE MOUTHWASH + GARGLE [Concomitant]
     Dosage: UNK UNK, 3X/DAY GARGLE
  9. ANASTROZOLE [Concomitant]
     Active Substance: ANASTROZOLE
     Dosage: UNK, 1X/DAY
     Route: 048
     Dates: start: 201812
  10. CALCIUM\CHOLECALCIFEROL [Concomitant]
     Active Substance: CALCIUM\CHOLECALCIFEROL
     Dosage: 1 DF, DAILY
     Route: 048
  11. D RISE [Concomitant]
     Dosage: UNK, MONTHLY
     Route: 048

REACTIONS (3)
  - Blood glucose increased [Unknown]
  - Bone disorder [Unknown]
  - Blood pressure increased [Unknown]
